FAERS Safety Report 6130245-4 (Version None)
Quarter: 2009Q1

REPORT INFORMATION
  Report Type: 
  Country: None (occurrence: None)
  Receive Date: 20090324
  Receipt Date: 20090317
  Transmission Date: 20090719
  Serious: Yes (Other)
  Sender: FDA-Public Use
  Company Number: US-PFIZER INC-2005015934

PATIENT
  Sex: Female
  Weight: 65.76 kg

DRUGS (8)
  1. PROVERA [Suspect]
     Indication: HORMONE REPLACEMENT THERAPY
     Dosage: UNK
     Route: 065
     Dates: start: 19941001, end: 19970101
  2. PROVERA [Suspect]
     Indication: MENOPAUSE
  3. PREMARIN [Suspect]
     Indication: HORMONE REPLACEMENT THERAPY
     Dosage: UNK
     Route: 065
     Dates: start: 19950101, end: 19970101
  4. PREMARIN [Suspect]
     Indication: MENOPAUSE
  5. PREMPRO [Suspect]
     Indication: MENOPAUSE
     Dosage: 0.625 MG, UNK
     Route: 065
     Dates: start: 19980101, end: 20021201
  6. ESTRADERM [Suspect]
     Indication: MENOPAUSE
     Dosage: UNK
     Route: 065
     Dates: start: 19941001, end: 19950101
  7. DIOVAN [Concomitant]
     Indication: HYPERTENSION
     Dosage: UNK
     Route: 065
     Dates: start: 20021001
  8. XALATAN [Concomitant]
     Indication: GLAUCOMA
     Dosage: UNK
     Route: 065
     Dates: start: 20020601

REACTIONS (1)
  - BREAST CANCER FEMALE [None]
